FAERS Safety Report 7369775-6 (Version None)
Quarter: 2011Q1

REPORT INFORMATION
  Report Type: 
  Country: None (occurrence: None)
  Receive Date: 20110323
  Receipt Date: 20110308
  Transmission Date: 20110831
  Serious: Yes (Other)
  Sender: FDA-Public Use
  Company Number: PHHY2011JP19358

PATIENT
  Age: 24 Year
  Sex: Female

DRUGS (3)
  1. METHERGINE [Suspect]
     Dosage: 0.2 MG, UNK
  2. OXYTOCIN [Suspect]
     Dosage: 5 IU, UNK
     Route: 042
  3. RITODRINE HYDROCHLORIDE [Concomitant]
     Indication: TOCOLYSIS

REACTIONS (4)
  - MUSCLE RIGIDITY [None]
  - PAIN [None]
  - DYSPHAGIA [None]
  - MYOTONIA [None]
